FAERS Safety Report 4941050-6 (Version None)
Quarter: 2006Q1

REPORT INFORMATION
  Report Type: 
  Country: None (occurrence: None)
  Receive Date: 20060307
  Receipt Date: 20060213
  Transmission Date: 20060701
  Serious: Yes (Death, Hospitalization)
  Sender: FDA-Public Use
  Company Number: P200600001

PATIENT
  Age: 86 Year
  Sex: Male

DRUGS (15)
  1. PLENAXIS [Suspect]
     Indication: PROSTATE CANCER
     Dosage: 100 MG, SINGLE, INTRAMUSCULAR
     Route: 030
     Dates: start: 20041122, end: 20041122
  2. PLENAXIS [Suspect]
     Indication: PROSTATE CANCER
     Dosage: 100 MG, SINGLE, INTRAMUSCULAR
     Route: 030
     Dates: start: 20041206, end: 20041206
  3. PLENAXIS [Suspect]
     Indication: PROSTATE CANCER
     Dosage: 100 MG, SINGLE, INTRAMUSCULAR
     Route: 030
     Dates: start: 20041212, end: 20041220
  4. PLENAXIS [Suspect]
     Indication: PROSTATE CANCER
     Dosage: 100 MG, SINGLE, INTRAMUSCULAR
     Route: 030
     Dates: start: 20050128, end: 20050128
  5. PLENAXIS [Suspect]
     Indication: PROSTATE CANCER
     Dosage: 100 MG, SINGLE, INTRAMUSCULAR
     Route: 030
     Dates: start: 20050302, end: 20050302
  6. PLENAXIS [Suspect]
     Indication: PROSTATE CANCER
     Dosage: 100 MG, SINGLE, INTRAMUSCULAR
     Route: 030
     Dates: start: 20050406, end: 20050406
  7. PLENAXIS [Suspect]
     Indication: PROSTATE CANCER
     Dosage: 100 MG, SINGLE, INTRAMUSCULAR
     Route: 030
     Dates: start: 20050506, end: 20050506
  8. PANOKASE [Concomitant]
  9. FERROUS SULFATE TAB [Concomitant]
  10. IMODIUM [Concomitant]
  11. ALTACE [Concomitant]
  12. NORVASC /DEN/ (AMLODIPINE BESILATE) [Concomitant]
  13. LEVOXYL [Concomitant]
  14. ACETAMINOPHEN [Concomitant]
  15. CARBIDOPA W/LEVODOPA (LEVODOPA, CARBIDOPA) [Concomitant]

REACTIONS (6)
  - ASTHENIA [None]
  - CLOSTRIDIAL INFECTION [None]
  - DIFFICULTY IN WALKING [None]
  - HERPES ZOSTER [None]
  - PYREXIA [None]
  - UROSEPSIS [None]
